FAERS Safety Report 8610286-5 (Version None)
Quarter: 2012Q3

REPORT INFORMATION
  Report Type: 
  Country: None (occurrence: None)
  Receive Date: 20120810
  Receipt Date: 20120810
  Transmission Date: 20120928
  Serious: Yes (Death)
  Sender: FDA-Public Use
  Company Number: None

PATIENT
  Age: 65 Year
  Sex: Female
  Weight: 66 kg

DRUGS (1)
  1. IODIXANOL 320 MG/ML GE HEALTHCARE [Suspect]
     Indication: PERIPHERAL ARTERIAL OCCLUSIVE DISEASE
     Dosage: 330 ML ONCE IV BOLUS
     Route: 040
     Dates: start: 20120529, end: 20120529

REACTIONS (13)
  - VOMITING [None]
  - BLOOD CREATININE INCREASED [None]
  - TACHYCARDIA [None]
  - ACUTE PRERENAL FAILURE [None]
  - GRAND MAL CONVULSION [None]
  - ATRIAL FIBRILLATION [None]
  - CONTRAST MEDIA REACTION [None]
  - HYPOTENSION [None]
  - DYSPNOEA [None]
  - BODY TEMPERATURE INCREASED [None]
  - URINARY TRACT INFECTION [None]
  - PNEUMONIA [None]
  - ANAPHYLACTIC SHOCK [None]
